FAERS Safety Report 7995122-2 (Version None)
Quarter: 2011Q4

REPORT INFORMATION
  Report Type: 
  Country: None (occurrence: None)
  Receive Date: 20111220
  Receipt Date: 20111214
  Transmission Date: 20120403
  Serious: Yes (Other)
  Sender: FDA-Public Use
  Company Number: US-GLAXOSMITHKLINE-A0952359A

PATIENT
  Sex: Female

DRUGS (4)
  1. PAXIL [Suspect]
     Indication: PRODUCT USED FOR UNKNOWN INDICATION
  2. LORAZEPAM [Suspect]
     Indication: PRODUCT USED FOR UNKNOWN INDICATION
     Route: 065
  3. PAROXETINE HCL [Suspect]
     Indication: PRODUCT USED FOR UNKNOWN INDICATION
     Route: 065
  4. PAROXETINE HCL [Suspect]
     Route: 065

REACTIONS (11)
  - AGGRESSION [None]
  - HOMICIDAL IDEATION [None]
  - DRUG INTERACTION [None]
  - PHYSICAL ASSAULT [None]
  - ANXIETY [None]
  - DEPRESSION [None]
  - INTENTIONAL SELF-INJURY [None]
  - STAB WOUND [None]
  - HOMICIDE [None]
  - AKATHISIA [None]
  - DRUG INEFFECTIVE [None]
